FAERS Safety Report 5625718-4 (Version None)
Quarter: 2008Q1

REPORT INFORMATION
  Report Type: 
  Country: None (occurrence: None)
  Receive Date: 20080214
  Receipt Date: 20080206
  Transmission Date: 20080703
  Serious: Yes (Other)
  Sender: FDA-Public Use
  Company Number: US-JNJFOC-20080201885

PATIENT
  Sex: Female
  Weight: 92.99 kg

DRUGS (6)
  1. REMICADE [Suspect]
     Indication: CROHN'S DISEASE
     Route: 042
  2. REMICADE [Suspect]
     Indication: ANKYLOSING SPONDYLITIS
     Route: 042
  3. SOMA [Concomitant]
     Indication: PAIN
     Route: 065
  4. SOMA [Concomitant]
     Indication: ANKYLOSING SPONDYLITIS
     Route: 065
  5. FLEXERIL [Concomitant]
     Indication: PAIN
     Route: 065
  6. FLEXERIL [Concomitant]
     Indication: ANKYLOSING SPONDYLITIS
     Route: 065

REACTIONS (3)
  - BRONCHIECTASIS [None]
  - BRONCHITIS CHRONIC [None]
  - PAIN [None]
